FAERS Safety Report 17650799 (Version 4)
Quarter: 2020Q3

REPORT INFORMATION
  Report Type: Spontaneous
  Country: US (occurrence: US)
  Receive Date: 20200409
  Receipt Date: 20200814
  Transmission Date: 20201102
  Serious: Yes (Death, Life-Threatening, Hospitalization, Other)
  Sender: FDA-Public Use
  Company Number: US-PFIZER INC-2020145244

PATIENT
  Age: 16 Year
  Sex: Female

DRUGS (3)
  1. BUPIVACAINE HCL [Suspect]
     Active Substance: BUPIVACAINE HYDROCHLORIDE
     Dosage: UNK,INFUSING
     Route: 042
     Dates: start: 2006, end: 2006
  2. FENTANYL CITRATE. [Suspect]
     Active Substance: FENTANYL CITRATE
     Dosage: 150 ML, UNK, PREPARED IN 150?ML BAGS, EPIDURAL INFUSION
     Route: 042
     Dates: start: 2006, end: 2006
  3. BENZYLPENICILLIN POTASSIUM [Suspect]
     Active Substance: PENICILLIN G POTASSIUM
     Dosage: 150 ML, UNK, INFUSION, PREPARED IN 150?ML BAGS

REACTIONS (5)
  - Product monitoring error [Fatal]
  - Wrong product administered [Fatal]
  - Incorrect route of product administration [Fatal]
  - Maternal exposure during pregnancy [Unknown]
  - Circulatory collapse [Fatal]

NARRATIVE: CASE EVENT DATE: 2006
